FAERS Safety Report 22660080 (Version 1)
Quarter: 2023Q2

REPORT INFORMATION
  Report Type: Spontaneous
  Country: US (occurrence: None)
  Receive Date: 20230630
  Receipt Date: 20230630
  Transmission Date: 20230721
  Serious: Yes (Hospitalization)
  Sender: FDA-Public Use
  Company Number: None

PATIENT
  Age: 71 Year
  Sex: Male

DRUGS (2)
  1. RYBELSUS [Suspect]
     Active Substance: SEMAGLUTIDE
     Dosage: FREQUENCY : DAILY;?
     Route: 048
     Dates: start: 20230601, end: 20230620
  2. RYBELSUS [Concomitant]
     Active Substance: SEMAGLUTIDE
     Dates: start: 20230601, end: 20230620

REACTIONS (4)
  - Abdominal pain [None]
  - Decreased appetite [None]
  - Nausea [None]
  - Dehydration [None]

NARRATIVE: CASE EVENT DATE: 20230620
